FAERS Safety Report 25995992 (Version 1)
Quarter: 2025Q4

REPORT INFORMATION
  Report Type: Spontaneous
  Country: JP (occurrence: JP)
  Receive Date: 20251104
  Receipt Date: 20251104
  Transmission Date: 20260117
  Serious: Yes (Other)
  Sender: PFIZER
  Company Number: JP-PFIZER INC-PV202500128219

PATIENT
  Age: 69 Year
  Sex: Male

DRUGS (1)
  1. ELREXFIO [Suspect]
     Active Substance: ELRANATAMAB-BCMM
     Dosage: 76 MG
     Route: 058
     Dates: start: 202506

REACTIONS (8)
  - Prerenal failure [Unknown]
  - Tumour lysis syndrome [Unknown]
  - Cytomegalovirus viraemia [Unknown]
  - Pseudomonal sepsis [Unknown]
  - Immune effector cell-associated neurotoxicity syndrome [Recovered/Resolved]
  - Clostridium difficile colitis [Unknown]
  - Cytomegalovirus enterocolitis [Unknown]
  - Sepsis [Unknown]

NARRATIVE: CASE EVENT DATE: 20250101
